FAERS Safety Report 9848134 (Version 1)
Quarter: 2014Q1

REPORT INFORMATION
  Report Type: Spontaneous
  Country: US (occurrence: None)
  Receive Date: 20140123
  Receipt Date: 20140123
  Transmission Date: 20141002
  Serious: Yes (Hospitalization)
  Sender: FDA-Public Use
  Company Number: None

PATIENT
  Age: 46 Year
  Sex: Male
  Weight: 93.3 kg

DRUGS (1)
  1. HYDROCHLOROTHIAZIDE [Suspect]
     Dosage: MG
     Route: 048
     Dates: start: 20131120, end: 20140107

REACTIONS (6)
  - Headache [None]
  - Vision blurred [None]
  - Dizziness [None]
  - Muscular weakness [None]
  - Fatigue [None]
  - Blood sodium decreased [None]
